FAERS Safety Report 10044656 (Version 2)
Quarter: 2014Q2

REPORT INFORMATION
  Report Type: Spontaneous
  Country: US (occurrence: US)
  Receive Date: 20140328
  Receipt Date: 20140425
  Transmission Date: 20141212
  Serious: Yes (Other)
  Sender: FDA-Public Use
  Company Number: US-SA-2014SA035644

PATIENT
  Age: 6 Year
  Sex: Male
  Weight: 320 kg

DRUGS (4)
  1. LANTUS SOLOSTAR [Suspect]
     Indication: TYPE 2 DIABETES MELLITUS
     Route: 065
  2. APIDRA SOLOSTAR [Suspect]
     Indication: TYPE 2 DIABETES MELLITUS
     Dosage: DOSAGE :10 UNITS (AS NEEDED SLIDING SCALE);3(FROM 10-15 UNITS SLIDING SCALE )BEFORE EVENING MEAL
     Route: 065
  3. SOLOSTAR [Concomitant]
  4. SOLOSTAR [Concomitant]

REACTIONS (1)
  - Cardiac operation [Unknown]
